FAERS Safety Report 8912071 (Version 1)
Quarter: 2012Q4

REPORT INFORMATION
  Report Type: 
  Country: CA (occurrence: CA)
  Receive Date: 20121116
  Receipt Date: 20121116
  Transmission Date: 20130627
  Serious: Yes (Hospitalization, Disabling, Other)
  Sender: FDA-Public Use
  Company Number: CA-ASTRAZENECA-2012SE84899

PATIENT
  Sex: Male
  Weight: 68 kg

DRUGS (1)
  1. CASODEX [Suspect]
     Route: 048

REACTIONS (6)
  - Glucose tolerance decreased [Unknown]
  - Blood bilirubin increased [Unknown]
  - Hepatic enzyme increased [Unknown]
  - Interstitial lung disease [Unknown]
  - Oedema peripheral [Unknown]
  - Pulmonary fibrosis [Unknown]
